FAERS Safety Report 6078488-2 (Version None)
Quarter: 2009Q1

REPORT INFORMATION
  Report Type: 
  Country: None (occurrence: None)
  Receive Date: 20090211
  Receipt Date: 20090211
  Transmission Date: 20090719
  Serious: No
  Sender: FDA-Public Use
  Company Number: None

PATIENT
  Sex: Male
  Weight: 117.9352 kg

DRUGS (1)
  1. METOPROLOL SUCCINATE [Suspect]
     Indication: BLOOD PRESSURE
     Dosage: 25 MG 2XDAY PO
     Route: 048
     Dates: start: 20050101, end: 20090209

REACTIONS (4)
  - HYPOAESTHESIA [None]
  - NERVE COMPRESSION [None]
  - PARAESTHESIA [None]
  - PRODUCT QUALITY ISSUE [None]
